FAERS Safety Report 7532438-8 (Version None)
Quarter: 2011Q2

REPORT INFORMATION
  Report Type: 
  Country: None (occurrence: None)
  Receive Date: 20110608
  Receipt Date: 20110602
  Transmission Date: 20111010
  Serious: Yes (Disabling)
  Sender: FDA-Public Use
  Company Number: GR-PFIZER INC-2011119390

PATIENT
  Age: 62 Year
  Sex: Female
  Weight: 74 kg

DRUGS (5)
  1. FLUOROURACIL [Concomitant]
     Indication: BREAST CANCER
     Dosage: 840 MG/M2, ONCE EVERY 2 WEEKS (3 CYCLES)
  2. EPIRUBICIN HYDROCHLORIDE [Suspect]
     Indication: BREAST CANCER
     Dosage: 110 MG/M2, ONCE EVERY 2 WEEKS (3 CYCLES)
     Route: 042
     Dates: start: 20050707, end: 20050804
  3. CYCLOPHOSPHAMIDE [Suspect]
     Indication: BREAST CANCER
     Dosage: 840 MG/M2, ONCE EVERY 2 WEEKS (3 CYCLES)
     Route: 042
     Dates: start: 20050825, end: 20051020
  4. METHOTREXATE [Concomitant]
     Indication: BREAST CANCER
     Dosage: 57 MG/M2, ONCE EVERY 2 WEEKS (3 CYCLES)
  5. PACLITAXEL [Concomitant]
     Dosage: 80 MG/M2, WEEKLY (12 CYCLES)

REACTIONS (1)
  - MULTIPLE MYELOMA [None]
